FAERS Safety Report 24809315 (Version 6)
Quarter: 2025Q2

REPORT INFORMATION
  Report Type: Report from Study
  Country: US (occurrence: US)
  Receive Date: 20250106
  Receipt Date: 20250526
  Transmission Date: 20250717
  Serious: No
  Sender: SUNOVION
  Company Number: US-SUMITOMO PHARMA SWITZERLAND GMBH-2024SPA006472

PATIENT

DRUGS (5)
  1. ORGOVYX [Suspect]
     Active Substance: RELUGOLIX
     Indication: Prostate cancer
     Dosage: 120 MG, QD
     Route: 048
     Dates: start: 20241024
  2. FENOFIBRATE [Suspect]
     Active Substance: FENOFIBRATE
     Route: 065
  3. ROSUVASTATIN [Suspect]
     Active Substance: ROSUVASTATIN
     Route: 065
  4. NUBEQA [Concomitant]
     Active Substance: DAROLUTAMIDE
     Indication: Product used for unknown indication
     Route: 065
  5. UNSPECIFIED INGREDIENT [Concomitant]
     Active Substance: UNSPECIFIED INGREDIENT
     Indication: Colonoscopy
     Route: 065

REACTIONS (17)
  - Dry skin [Unknown]
  - Pain [Unknown]
  - Epistaxis [Unknown]
  - Nasal congestion [Unknown]
  - Taste disorder [Unknown]
  - General physical health deterioration [Unknown]
  - Nasopharyngitis [Unknown]
  - Alopecia [Unknown]
  - Nocturia [Unknown]
  - Sinus disorder [Unknown]
  - Glycosylated haemoglobin abnormal [Unknown]
  - Dyspnoea [Recovering/Resolving]
  - Nasal dryness [Unknown]
  - Hot flush [Unknown]
  - Headache [Unknown]
  - Blood cholesterol increased [Unknown]
  - Incorrect dose administered [Unknown]
